FAERS Safety Report 10725405 (Version 1)
Quarter: 2015Q1

REPORT INFORMATION
  Report Type: Spontaneous
  Country: US (occurrence: US)
  Receive Date: 20150121
  Receipt Date: 20150121
  Transmission Date: 20150721
  Serious: Yes (Death, Other)
  Sender: FDA-Public Use
  Company Number: US-GLAXOSMITHKLINE-US2015GSK006581

PATIENT
  Age: 71 Year
  Sex: Male

DRUGS (1)
  1. HYCAMTIN [Suspect]
     Active Substance: TOPOTECAN HYDROCHLORIDE
     Indication: PRODUCT USED FOR UNKNOWN INDICATION
     Dosage: 4 MG PER DAY FOR 5 DAYS, REPEAT EVERY 21 DAYS
     Route: 048
     Dates: start: 20141106

REACTIONS (1)
  - Death [Fatal]

NARRATIVE: CASE EVENT DATE: 20150113
